FAERS Safety Report 21308621 (Version 1)
Quarter: 2022Q3

REPORT INFORMATION
  Report Type: Spontaneous
  Country: None (occurrence: CA)
  Receive Date: 20220908
  Receipt Date: 20220908
  Transmission Date: 20221027
  Serious: Yes (Other)
  Sender: FDA-Public Use
  Company Number: CA-B.Braun Medical Inc.-2132671

PATIENT
  Sex: Female

DRUGS (2)
  1. SODIUM CHLORIDE [Suspect]
     Active Substance: SODIUM CHLORIDE
  2. VENOFER [Suspect]
     Active Substance: IRON SUCROSE

REACTIONS (6)
  - Feeling abnormal [Unknown]
  - Headache [Unknown]
  - Incorrect product administration duration [Unknown]
  - Infusion site rash [Unknown]
  - Peripheral swelling [Unknown]
  - Product quality issue [Unknown]
